FAERS Safety Report 13552666 (Version 1)
Quarter: 2020Q3

REPORT INFORMATION
  Report Type: Report from Study
  Country: VN (occurrence: VN)
  Receive Date: 20170517
  Receipt Date: 20170517
  Transmission Date: 20201104
  Serious: Yes (Hospitalization, Other)
  Sender: FDA-Public Use
  Company Number: VN-ASTRAZENECA-2016SE57358

PATIENT
  Age: 19398 Day
  Sex: Male

DRUGS (7)
  1. MEDI4736 [Suspect]
     Active Substance: DURVALUMAB
     Indication: NON-SMALL CELL LUNG CANCER
     Dosage: 1260.0MG ONCE/SINGLE ADMINISTRATION
     Route: 042
     Dates: start: 20160303, end: 20160303
  2. TREMELIMUMAB. [Suspect]
     Active Substance: TREMELIMUMAB
     Indication: NON-SMALL CELL LUNG CANCER
     Dosage: 63.0MG ONCE/SINGLE ADMINISTRATION
     Route: 042
     Dates: start: 20160428, end: 20160428
  3. TREMELIMUMAB. [Suspect]
     Active Substance: TREMELIMUMAB
     Indication: NON-SMALL CELL LUNG CANCER
     Dosage: 63.0MG ONCE/SINGLE ADMINISTRATION
     Route: 042
     Dates: start: 20160303, end: 20160303
  4. THIAMAZOLE [Concomitant]
     Active Substance: METHIMAZOLE
     Indication: HYPERTENSION
     Route: 048
     Dates: start: 20160331, end: 20160524
  5. STUDY PROCEDURE [Suspect]
     Active Substance: INVESTIGATIONAL PRODUCT
     Indication: NON-SMALL CELL LUNG CANCER
     Route: 065
  6. MEDI4736 [Suspect]
     Active Substance: DURVALUMAB
     Indication: NON-SMALL CELL LUNG CANCER
     Dosage: 1260.0MG ONCE/SINGLE ADMINISTRATION
     Route: 042
     Dates: start: 20160428, end: 20160428
  7. MICARDIS PLUS [Concomitant]
     Active Substance: HYDROCHLOROTHIAZIDE\TELMISARTAN
     Indication: HYPERTENSION
     Dosage: TELMISARTAN 40 MG/HYDROCHOLOTHIAZIDE 12.5 MG, 1 TABLET DAILY
     Route: 048
     Dates: start: 20160303, end: 20160623

REACTIONS (1)
  - Hepatitis acute [Recovered/Resolved]

NARRATIVE: CASE EVENT DATE: 20160525
